FAERS Safety Report 20455724 (Version 2)
Quarter: 2022Q1

REPORT INFORMATION
  Report Type: Spontaneous
  Country: JP (occurrence: JP)
  Receive Date: 20220210
  Receipt Date: 20220301
  Transmission Date: 20220424
  Serious: Yes (Hospitalization, Other)
  Sender: FDA-Public Use
  Company Number: JP-AMGEN-JPNSP2022019626

PATIENT
  Age: 56 Year
  Sex: Male

DRUGS (1)
  1. REPATHA [Suspect]
     Active Substance: EVOLOCUMAB
     Indication: Lipids increased
     Dosage: UNK
     Route: 065

REACTIONS (4)
  - Angina pectoris [Unknown]
  - Myocardial ischaemia [Unknown]
  - Ventricular hypokinesia [Unknown]
  - Vascular stent occlusion [Recovered/Resolved]
